FAERS Safety Report 4491669-4 (Version None)
Quarter: 2004Q4

REPORT INFORMATION
  Report Type: 
  Country: None (occurrence: None)
  Receive Date: 20041101
  Receipt Date: 20041019
  Transmission Date: 20050328
  Serious: Yes (Hospitalization)
  Sender: FDA-Public Use
  Company Number: SUS1-2004-00622

PATIENT
  Age: 6 Year
  Sex: Female

DRUGS (6)
  1. CARBATROL [Suspect]
     Indication: CONVULSION
     Dosage: 300 MG, 1X/DAY:QD
     Dates: start: 20040820, end: 20040930
  2. PREDNISONE [Concomitant]
  3. ZYRTEC [Concomitant]
  4. CONCERTA [Concomitant]
  5. SINGULAIR ^MERCK^ (MONTELUKAST SODIUM) [Concomitant]
  6. PULMICORT [Concomitant]

REACTIONS (8)
  - ALANINE AMINOTRANSFERASE INCREASED [None]
  - ASPARTATE AMINOTRANSFERASE INCREASED [None]
  - BILIRUBIN CONJUGATED INCREASED [None]
  - BLOOD ALKALINE PHOSPHATASE INCREASED [None]
  - BLOOD BILIRUBIN INCREASED [None]
  - EOSINOPHIL PERCENTAGE INCREASED [None]
  - LYMPHOCYTE PERCENTAGE DECREASED [None]
  - RASH MACULO-PAPULAR [None]
